FAERS Safety Report 4365851-0 (Version None)
Quarter: 2004Q2

REPORT INFORMATION
  Report Type: 
  Country: None (occurrence: None)
  Receive Date: 20040520
  Receipt Date: 20040507
  Transmission Date: 20050107
  Serious: Yes (Other)
  Sender: FDA-Public Use
  Company Number: FR-JNJFOC-20040501499

PATIENT
  Sex: Female

DRUGS (7)
  1. PREPULSID (CISAPRIDE) SUSPENSION [Suspect]
     Indication: GASTROOESOPHAGEAL REFLUX DISEASE
     Dosage: 0.2 MG, 3 IN 1 DAY, ORAL
     Route: 048
     Dates: start: 20040506, end: 20040507
  2. UVESTEROL (UNKNOWN) UVESTEROL [Concomitant]
  3. IRON SULFATE (UNKNOWN) FERROUS SULFATE [Concomitant]
  4. RIFAMYCIN (UKNOWN) RIFAMYCIN [Concomitant]
  5. NEO RECORMON (EPOETIN BETA) [Concomitant]
  6. MOTILIUM (DOMPERIDONE) SUSPENSION [Concomitant]
  7. DEBRIDAT (TRIMEBUTINE MALEATE) [Concomitant]

REACTIONS (1)
  - ELECTROCARDIOGRAM QT CORRECTED INTERVAL PROLONGED [None]
